FAERS Safety Report 23797456 (Version 3)
Quarter: 2025Q1

REPORT INFORMATION
  Report Type: Spontaneous
  Country: US (occurrence: US)
  Receive Date: 20240430
  Receipt Date: 20250224
  Transmission Date: 20250409
  Serious: No
  Sender: ELI LILLY AND COMPANY
  Company Number: US-ELI_LILLY_AND_COMPANY-US202404017857

PATIENT
  Age: 46 Year
  Sex: Female

DRUGS (1)
  1. VERZENIO [Suspect]
     Active Substance: ABEMACICLIB
     Indication: Breast cancer female
     Dosage: 150 MG, BID
     Route: 048

REACTIONS (8)
  - Gastrooesophageal reflux disease [Unknown]
  - Cystitis [Unknown]
  - Disturbance in attention [Unknown]
  - Rash pruritic [Unknown]
  - Cough [Unknown]
  - Arthralgia [Unknown]
  - Sluggishness [Unknown]
  - Diarrhoea [Unknown]
